FAERS Safety Report 8621438 (Version 2)
Quarter: 2012Q4

REPORT INFORMATION
  Report Type: 
  Country: US (occurrence: US)
  Receive Date: 20120619
  Receipt Date: 20120910
  Transmission Date: 20130627
  Serious: Yes (Other)
  Sender: FDA-Public Use
  Company Number: US-BAYER-2012-058074

PATIENT
  Age: 37 Year
  Sex: Female
  Weight: 58.5 kg

DRUGS (3)
  1. MIRENA [Suspect]
     Indication: CONTRACEPTION
     Dosage: 20 ?g/d, CONT
     Route: 015
     Dates: start: 20101012, end: 20120612
  2. MVI [Concomitant]
  3. CLARITIN [Concomitant]

REACTIONS (3)
  - Device dislocation [Recovered/Resolved]
  - Abdominal pain [None]
  - Ovarian cyst [None]
